FAERS Safety Report 6820763-5 (Version None)
Quarter: 2010Q3

REPORT INFORMATION
  Report Type: 
  Country: None (occurrence: None)
  Receive Date: 20100707
  Receipt Date: 20041105
  Transmission Date: 20110219
  Serious: No
  Sender: FDA-Public Use
  Company Number: US-PFIZER INC-2007059733

PATIENT
  Sex: Male

DRUGS (3)
  1. ZOLOFT [Suspect]
  2. VIOXX [Interacting]
  3. SYNTHROID [Interacting]

REACTIONS (1)
  - DRUG INTERACTION [None]
